FAERS Safety Report 10758175 (Version 1)
Quarter: 2015Q1

REPORT INFORMATION
  Report Type: Spontaneous
  Country: US (occurrence: None)
  Receive Date: 20150202
  Receipt Date: 20150202
  Transmission Date: 20150721
  Serious: Yes (Hospitalization)
  Sender: FDA-Public Use
  Company Number: None

PATIENT
  Age: 71 Year
  Sex: Male
  Weight: 74.1 kg

DRUGS (14)
  1. XANAX [Concomitant]
     Active Substance: ALPRAZOLAM
  2. ALDACTONE [Concomitant]
     Active Substance: SPIRONOLACTONE
  3. PACERONE [Concomitant]
     Active Substance: AMIODARONE HYDROCHLORIDE
  4. KCON [Concomitant]
  5. NOVOLOG [Concomitant]
     Active Substance: INSULIN ASPART
  6. PROVENTIL [Concomitant]
     Active Substance: ALBUTEROL
  7. NOVOLOG [Concomitant]
     Active Substance: INSULIN ASPART
  8. ZYLOPRIM [Concomitant]
     Active Substance: ALLOPURINOL
  9. PROSCAR [Concomitant]
     Active Substance: FINASTERIDE
  10. COUMADIN [Suspect]
     Active Substance: WARFARIN SODIUM
     Indication: ATRIAL FIBRILLATION
     Dosage: CHRONIC
     Route: 048
  11. LANOXIN [Concomitant]
     Active Substance: DIGOXIN
  12. ASPIRIN ENTERIC COATED [Suspect]
     Active Substance: ASPIRIN
     Indication: CORONARY ARTERY BYPASS
     Route: 048
  13. LIPITOR [Concomitant]
     Active Substance: ATORVASTATIN CALCIUM
  14. IMDUR [Concomitant]
     Active Substance: ISOSORBIDE MONONITRATE

REACTIONS (2)
  - Haematuria [None]
  - Urinary tract infection [None]

NARRATIVE: CASE EVENT DATE: 20141126
